FAERS Safety Report 5054042-6 (Version None)
Quarter: 2006Q3

REPORT INFORMATION
  Report Type: 
  Country: None (occurrence: None)
  Receive Date: 20060713
  Receipt Date: 20060706
  Transmission Date: 20061208
  Serious: Yes (Other)
  Sender: FDA-Public Use
  Company Number: URSO-2006-028

PATIENT
  Age: 82 Year
  Sex: Female

DRUGS (1)
  1. URSODIOL [Suspect]
     Dosage: 300 MG, PO
     Route: 048

REACTIONS (2)
  - COUGH [None]
  - INTERSTITIAL LUNG DISEASE [None]
